FAERS Safety Report 9564749 (Version 1)
Quarter: 2013Q3

REPORT INFORMATION
  Report Type: Spontaneous
  Country: FR (occurrence: FR)
  Receive Date: 20130930
  Receipt Date: 20130930
  Transmission Date: 20140515
  Serious: Yes (Other)
  Sender: FDA-Public Use
  Company Number: FR-JNJFOC-20130913830

PATIENT
  Age: 34 Year
  Sex: Female

DRUGS (9)
  1. REMICADE [Suspect]
     Indication: COLITIS ULCERATIVE
     Dosage: 100 MG
     Route: 042
  2. REMICADE [Suspect]
     Indication: COLITIS ULCERATIVE
     Dosage: 100 MG
     Route: 042
     Dates: start: 20080118
  3. REMICADE [Suspect]
     Indication: COLITIS ULCERATIVE
     Dosage: 100 MG
     Route: 042
     Dates: start: 201301
  4. SOLUMEDROL (METHYLPREDNISOLONE SODIUM SUCCINATE) [Concomitant]
     Route: 065
     Dates: start: 200801
  5. PENTASA [Concomitant]
     Route: 065
     Dates: start: 201002
  6. ZELITREX [Concomitant]
     Route: 065
     Dates: start: 201208
  7. AERIUS [Concomitant]
     Route: 065
     Dates: start: 2007
  8. MINIDRIL [Concomitant]
     Route: 065
     Dates: start: 2007
  9. SEROPLEX [Concomitant]
     Route: 065
     Dates: start: 2007

REACTIONS (2)
  - Alopecia areata [Not Recovered/Not Resolved]
  - Condition aggravated [Not Recovered/Not Resolved]
